FAERS Safety Report 6228732-3 (Version None)
Quarter: 2009Q2

REPORT INFORMATION
  Report Type: 
  Country: None (occurrence: None)
  Receive Date: 20090615
  Receipt Date: 20090610
  Transmission Date: 20091009
  Serious: Yes (Other)
  Sender: FDA-Public Use
  Company Number: US-JNJFOC-20090400347

PATIENT
  Sex: Female

DRUGS (10)
  1. LEVAQUIN [Suspect]
     Indication: PROPHYLAXIS
     Dosage: EVERY 4 HOURS
     Route: 042
  2. LEVAQUIN [Suspect]
     Route: 048
  3. LORTAB [Concomitant]
     Route: 065
  4. MORPHINE [Concomitant]
     Indication: PAIN
     Route: 065
  5. PHENERGAN [Concomitant]
     Indication: PAIN
     Route: 065
  6. BENADRYL [Concomitant]
     Route: 065
  7. DEXTROSE [Concomitant]
     Route: 065
  8. SODIUM CHLORIDE [Concomitant]
     Route: 065
  9. UNKNOWN MEDICATION [Concomitant]
     Route: 065
  10. PERCOCET [Concomitant]
     Route: 065

REACTIONS (2)
  - DRUG EXPOSURE DURING PREGNANCY [None]
  - INTRA-UTERINE DEATH [None]
